FAERS Safety Report 18579345 (Version 1)
Quarter: 2020Q4

REPORT INFORMATION
  Report Type: Spontaneous
  Country: JP (occurrence: JP)
  Receive Date: 20201204
  Receipt Date: 20201204
  Transmission Date: 20210114
  Serious: Yes (Hospitalization, Other)
  Sender: FDA-Public Use
  Company Number: JP-GLAXOSMITHKLINE-JP2020JPN236831

PATIENT
  Age: 25 Year
  Sex: Female

DRUGS (2)
  1. LAMICTAL [Suspect]
     Active Substance: LAMOTRIGINE
     Indication: BIPOLAR DISORDER
     Dosage: 25 MG, 1D
     Route: 048
  2. VALPROATE SODIUM. [Concomitant]
     Active Substance: VALPROATE SODIUM
     Indication: BIPOLAR DISORDER
     Dosage: 400 MG, 1D
     Route: 048

REACTIONS (13)
  - Mucosal erosion [Unknown]
  - Erythema [Unknown]
  - Ulcerative keratitis [Unknown]
  - Mucosal inflammation [Unknown]
  - Toxic epidermal necrolysis [Unknown]
  - Erythema annulare [Unknown]
  - Mucosal hyperaemia [Unknown]
  - Lip erosion [Unknown]
  - Lip erythema [Unknown]
  - Oral mucosal erythema [Unknown]
  - Oral mucosa erosion [Unknown]
  - Rash [Unknown]
  - Visual impairment [Unknown]
